FAERS Safety Report 10018206 (Version 1)
Quarter: 2014Q1

REPORT INFORMATION
  Report Type: Spontaneous
  Country: US (occurrence: US)
  Receive Date: 20140318
  Receipt Date: 20140318
  Transmission Date: 20141002
  Serious: Yes (Other)
  Sender: FDA-Public Use
  Company Number: US-BRISTOL-MYERS SQUIBB COMPANY-19227552

PATIENT
  Age: 75 Year
  Sex: Male
  Weight: 102 kg

DRUGS (8)
  1. ERBITUX [Suspect]
     Indication: SQUAMOUS CELL CARCINOMA OF LUNG
  2. CARBOPLATIN [Concomitant]
  3. ABRAXANE [Concomitant]
  4. MEDROL [Concomitant]
  5. BENADRYL [Concomitant]
  6. ZANTAC [Concomitant]
  7. ALOXI [Concomitant]
  8. EMEND [Concomitant]
     Dosage: LOT: C1200191, EXP: AUG2015?LOT: 10L00061D, EXP: NOV2013

REACTIONS (2)
  - Hypersensitivity [Unknown]
  - Off label use [Unknown]
